FAERS Safety Report 6656304-5 (Version None)
Quarter: 2010Q1

REPORT INFORMATION
  Report Type: 
  Country: None (occurrence: None)
  Receive Date: 20100329
  Receipt Date: 20100319
  Transmission Date: 20100710
  Serious: Yes (Hospitalization)
  Sender: FDA-Public Use
  Company Number: GXKR2010HU03332

PATIENT
  Age: 41 Year
  Sex: Female

DRUGS (8)
  1. CEFAZOLIN SANDOZ (NGX) [Suspect]
     Indication: INFECTION PROPHYLAXIS
     Dosage: 3 X 1 G, UNK
     Route: 042
  2. DICLOFENAC [Suspect]
     Indication: POSTOPERATIVE ANALGESIA
     Dosage: 75 MG, QD (1 VIAL)
     Route: 042
  3. MIVACURIUM [Concomitant]
     Dosage: 2 MG/ML, UNK
  4. SUFENTANIL [Concomitant]
  5. PROPOFOL [Concomitant]
  6. MIDAZOLAM HCL [Concomitant]
  7. IODINE [Concomitant]
  8. NALBUPHINE [Concomitant]
     Indication: POSTOPERATIVE ANALGESIA

REACTIONS (4)
  - DIALYSIS [None]
  - DISSEMINATED INTRAVASCULAR COAGULATION [None]
  - HAEMATURIA [None]
  - RENAL FAILURE ACUTE [None]
